FAERS Safety Report 6915483-2 (Version None)
Quarter: 2010Q3

REPORT INFORMATION
  Report Type: 
  Country: None (occurrence: None)
  Receive Date: 20100809
  Receipt Date: 20100723
  Transmission Date: 20110219
  Serious: Yes (Other)
  Sender: FDA-Public Use
  Company Number: US-ABBOTT-10P-163-0657913-00

PATIENT
  Sex: Female

DRUGS (6)
  1. DEPAKOTE ER [Suspect]
     Indication: PRODUCT USED FOR UNKNOWN INDICATION
     Dosage: 2 TABS IN AM, 1 TABS MIDDAY, 2 TABS PM; GENERIC DEPAKOTE
     Route: 048
     Dates: start: 20090101
  2. DEPAKOTE ER [Suspect]
     Dosage: BRAND NAME DEPAKOTE
     Dates: end: 20090101
  3. LOVASTATIN [Concomitant]
     Indication: PRODUCT USED FOR UNKNOWN INDICATION
     Route: 048
  4. HYDROCHLOROTHIAZIDE [Concomitant]
     Indication: PRODUCT USED FOR UNKNOWN INDICATION
     Route: 048
  5. LISINOPRIL [Concomitant]
     Indication: PRODUCT USED FOR UNKNOWN INDICATION
     Route: 048
  6. TRILEPTOL [Concomitant]
     Indication: PRODUCT USED FOR UNKNOWN INDICATION
     Dosage: TID
     Route: 048

REACTIONS (3)
  - HEADACHE [None]
  - PETIT MAL EPILEPSY [None]
  - TREMOR [None]
